FAERS Safety Report 9095589 (Version 1)
Quarter: 2013Q1

REPORT INFORMATION
  Report Type: Spontaneous
  Country: GB (occurrence: GB)
  Receive Date: 20130220
  Receipt Date: 20130220
  Transmission Date: 20140127
  Serious: Yes (Hospitalization)
  Sender: FDA-Public Use
  Company Number: 2013SP000802

PATIENT
  Age: 49 Year
  Sex: Female
  Weight: 80 kg

DRUGS (15)
  1. FLUOROURACIL [Suspect]
     Indication: BREAST CANCER
     Dates: start: 20121004, end: 20121115
  2. EPIRUBICIN [Suspect]
     Indication: BREAST CANCER
     Dates: start: 20121004, end: 20121115
  3. DOCETAXEL [Suspect]
     Indication: BREAST CANCER
     Dates: start: 20121206
  4. DOCETAXEL [Suspect]
     Indication: BREAST CANCER
     Dates: start: 20121227, end: 20130117
  5. CYCLOPHOSPHAMIDE [Suspect]
     Indication: BREAST CANCER
     Dates: start: 20121004, end: 20121115
  6. TRASTUZUMAB [Suspect]
     Indication: BREAST CANCER
     Route: 058
     Dates: start: 20121205
  7. TRASTUZUMAB [Suspect]
     Indication: BREAST CANCER
  8. APREPITANT [Concomitant]
     Indication: PRODUCT USED FOR UNKNOWN INDICATION
     Dates: start: 20121115
  9. APREPITANT [Concomitant]
     Indication: PRODUCT USED FOR UNKNOWN INDICATION
     Dates: start: 20121116
  10. DEXAMETHASONE [Concomitant]
     Indication: PRODUCT USED FOR UNKNOWN INDICATION
     Dates: start: 20121205
  11. DEXAMETHASONE [Concomitant]
     Indication: PRODUCT USED FOR UNKNOWN INDICATION
     Dates: start: 20121004, end: 20121230
  12. FILGRASTIM [Concomitant]
     Indication: PRODUCT USED FOR UNKNOWN INDICATION
     Dates: start: 20121004, end: 20130122
  13. OMEPRAZOLE [Concomitant]
     Indication: PRODUCT USED FOR UNKNOWN INDICATION
     Dates: start: 20121211
  14. OTEX [Concomitant]
     Indication: PRODUCT USED FOR UNKNOWN INDICATION
     Dates: start: 20121213
  15. CARBAMIDE PEROXIDE [Concomitant]

REACTIONS (7)
  - Lower respiratory tract infection [Recovered/Resolved]
  - Pyrexia [Recovered/Resolved]
  - Blood pressure increased [Recovered/Resolved]
  - Myalgia [Recovered/Resolved]
  - Heart rate increased [Recovered/Resolved]
  - Respiratory rate increased [Recovered/Resolved]
  - Throat irritation [Recovered/Resolved]
